FAERS Safety Report 12520986 (Version 2)
Quarter: 2016Q4

REPORT INFORMATION
  Report Type: Report from Study
  Country: US (occurrence: US)
  Receive Date: 20160701
  Receipt Date: 20161005
  Transmission Date: 20170207
  Serious: Yes (Hospitalization, Other)
  Sender: FDA-Public Use
  Company Number: US-ROCHE-1549771

PATIENT
  Age: 53 Year
  Sex: Female
  Weight: 55.1 kg

DRUGS (6)
  1. VELIPARIB [Suspect]
     Active Substance: VELIPARIB
     Indication: OVARIAN EPITHELIAL CANCER
     Dosage: LAST DOSE PRIOR TO SAE: 10/NOV/2014
     Route: 048
     Dates: start: 20141104, end: 20141111
  2. VELIPARIB [Suspect]
     Active Substance: VELIPARIB
     Route: 048
     Dates: start: 20140919
  3. PEMETREXED DISODIUM [Suspect]
     Active Substance: PEMETREXED DISODIUM
     Indication: OVARIAN EPITHELIAL CANCER
     Route: 065
     Dates: start: 20141125
  4. CARBOPLATIN. [Suspect]
     Active Substance: CARBOPLATIN
     Indication: OVARIAN EPITHELIAL CANCER
     Dosage: LAST DOSE PRIOR TO SAE: 07/NOV/2014?AUC 6
     Route: 042
  5. PACLITAXEL. [Suspect]
     Active Substance: PACLITAXEL
     Indication: OVARIAN EPITHELIAL CANCER
     Dosage: LAST DOSE PRIOR TO SAE: 07/NOV/2014
     Route: 042
  6. BEVACIZUMAB [Suspect]
     Active Substance: BEVACIZUMAB
     Indication: OVARIAN EPITHELIAL CANCER
     Dosage: LAST DOSE PRIOR TO SAE 07/NOV/2014?15 MG/KG IV OVER 30-90 MINS ON DAY 1
     Route: 042
     Dates: start: 20141107, end: 20141111

REACTIONS (5)
  - Wound infection [Recovering/Resolving]
  - Hypophosphataemia [Recovering/Resolving]
  - Neutrophil count decreased [Unknown]
  - Anaemia [Recovering/Resolving]
  - Embolism [Unknown]

NARRATIVE: CASE EVENT DATE: 20141205
